FAERS Safety Report 24183313 (Version 1)
Quarter: 2024Q3

REPORT INFORMATION
  Report Type: Spontaneous
  Country: US (occurrence: None)
  Receive Date: 20240806
  Receipt Date: 20240806
  Transmission Date: 20241017
  Serious: Yes (Hospitalization)
  Sender: Public
  Company Number: None

PATIENT
  Age: 50 Year
  Sex: Male

DRUGS (1)
  1. CAPECITABINE [Suspect]
     Active Substance: CAPECITABINE
     Indication: Product used for unknown indication
     Dosage: FREQUENCY : TWICE A DAY;?

REACTIONS (4)
  - Thrombosis [None]
  - Pulmonary embolism [None]
  - Therapy interrupted [None]
  - Asthenia [None]
